FAERS Safety Report 4535374-4 (Version None)
Quarter: 2004Q4

REPORT INFORMATION
  Report Type: 
  Country: None (occurrence: None)
  Receive Date: 20041222
  Receipt Date: 20041216
  Transmission Date: 20050328
  Serious: Yes (Hospitalization)
  Sender: FDA-Public Use
  Company Number: IT-ABBOTT-04P-083-0283887-00

PATIENT
  Sex: Female

DRUGS (2)
  1. ERITROCINA [Suspect]
     Indication: PERIODONTITIS
     Route: 048
     Dates: start: 20041110, end: 20041111
  2. NIMESULIDE [Concomitant]
     Indication: PERIODONTITIS
     Route: 048
     Dates: start: 20041110, end: 20041110

REACTIONS (3)
  - ABDOMINAL PAIN [None]
  - BILIARY COLIC [None]
  - NAUSEA [None]
